FAERS Safety Report 4710190-9 (Version None)
Quarter: 2005Q3

REPORT INFORMATION
  Report Type: 
  Country: None (occurrence: None)
  Receive Date: 20050709
  Receipt Date: 20050615
  Transmission Date: 20060218
  Serious: Yes (Other)
  Sender: FDA-Public Use
  Company Number: BE-MERCK-0506BEL00050

PATIENT
  Age: 42 Year
  Sex: Male

DRUGS (4)
  1. SINGULAIR [Suspect]
     Indication: ASTHMA
     Route: 048
     Dates: start: 20050315, end: 20050520
  2. SINGULAIR [Suspect]
     Indication: RHINITIS ALLERGIC
     Route: 048
     Dates: start: 20050315, end: 20050520
  3. FLUTICASONE PROPIONATE AND SALMETEROL XINAFOATE [Concomitant]
     Indication: ASTHMA
     Route: 055
  4. CORTICOSTEROIDS (UNSPECIFIED) [Concomitant]
     Route: 048

REACTIONS (3)
  - DERMATITIS ALLERGIC [None]
  - DRUG INEFFECTIVE [None]
  - RHINITIS ALLERGIC [None]
